FAERS Safety Report 13914415 (Version 2)
Quarter: 2017Q3

REPORT INFORMATION
  Report Type: Spontaneous
  Country: US (occurrence: US)
  Receive Date: 20170829
  Receipt Date: 20170901
  Transmission Date: 20171127
  Serious: No
  Sender: FDA-Public Use
  Company Number: US-PFIZER INC-2017059007

PATIENT
  Age: 54 Year
  Sex: Female

DRUGS (16)
  1. LYRICA [Suspect]
     Active Substance: PREGABALIN
     Indication: TYPE 2 DIABETES MELLITUS
     Dosage: 200 MG, 3X/DAY
     Route: 048
     Dates: start: 20150921
  2. NOVOLOG [Concomitant]
     Active Substance: INSULIN ASPART
     Dosage: 30 IU, 3X/DAY (THREE TIMES DAILY BEFORE MEALS FOR 90 DAYS)
     Route: 058
     Dates: start: 20161228
  3. BENAZEPRIL HCL [Concomitant]
     Active Substance: BENAZEPRIL HYDROCHLORIDE
     Dosage: 20 MG, DAILY (1 TABLET)
     Route: 048
  4. ONE TOUCH [Concomitant]
     Dosage: 4X/DAY (1 LANCET FOUR TIMES DAILY)
     Dates: start: 20160323
  5. PANTOPRAZOLE SODIUM. [Concomitant]
     Active Substance: PANTOPRAZOLE SODIUM
     Dosage: 40 MG, DAILY (1)
     Route: 042
  6. LEVEMIR [Concomitant]
     Active Substance: INSULIN DETEMIR
     Dosage: 50 IU, 1X/DAY (AT BEDTIME FOR 90 DAYS)
     Route: 058
     Dates: start: 20161122
  7. ZOLPIDEM TARTRATE. [Concomitant]
     Active Substance: ZOLPIDEM TARTRATE
     Dosage: 10 MG, 1X/DAY (AT BEDTIME)
     Route: 048
  8. PHENERGAN [Concomitant]
     Active Substance: PROMETHAZINE HYDROCHLORIDE
     Dosage: 1 DF, UNK (1 INJECTION)
  9. ATORVASTATIN CALCIUM. [Concomitant]
     Active Substance: ATORVASTATIN CALCIUM
     Dosage: 10 MG, DAILY (1 TABLET)
     Route: 048
     Dates: start: 20161122
  10. VITAMIN D [Concomitant]
     Active Substance: CHOLECALCIFEROL
     Dosage: 1000 IU, (1 CAPSULE, ORAL)
     Route: 048
  11. LIPODERM [Concomitant]
     Active Substance: BACLOFEN\CYCLOBENZAPRINE\DICLOFENAC\GABAPENTIN\TETRACAINE
     Dosage: 3 DF, DAILY (3 PATCHES, EXTERNAL)
     Dates: start: 20150921
  12. PAROXETINE HCL [Concomitant]
     Active Substance: PAROXETINE HYDROCHLORIDE
     Dosage: 20 MG, DAILY (1 TABLET)
     Route: 048
  13. ONE TOUCH [Concomitant]
     Dosage: UNK, 4X/DAY [1 (ONE) STRIP (IN VITRO) FOUR TIMES DAILY]
     Dates: start: 20170104
  14. FUROSEMIDE. [Concomitant]
     Active Substance: FUROSEMIDE
     Dosage: 20 MG, (1 TABLET)
     Route: 048
  15. CYANOCOBALAMIN. [Concomitant]
     Active Substance: CYANOCOBALAMIN
     Dosage: 1 DF, (1 INJECTION)
  16. ASPIRIN. [Concomitant]
     Active Substance: ASPIRIN
     Dosage: 81 MG, DAILY (1 TABLET)
     Route: 048

REACTIONS (1)
  - Pain [Unknown]
